FAERS Safety Report 22090564 (Version 2)
Quarter: 2023Q1

REPORT INFORMATION
  Report Type: Report from Study
  Country: AT (occurrence: AT)
  Receive Date: 20230313
  Receipt Date: 20230316
  Transmission Date: 20230418
  Serious: Yes (Other)
  Sender: FDA-Public Use
  Company Number: AT-ABBVIE-4338314

PATIENT
  Sex: Female

DRUGS (1)
  1. HUMIRA [Suspect]
     Active Substance: ADALIMUMAB
     Indication: Crohn^s disease
     Route: 058

REACTIONS (4)
  - Anal haemorrhage [Recovered/Resolved]
  - Acne pustular [Recovered/Resolved]
  - Eye disorder [Not Recovered/Not Resolved]
  - Skin disorder [Not Recovered/Not Resolved]
